FAERS Safety Report 23226704 (Version 1)
Quarter: 2023Q4

REPORT INFORMATION
  Report Type: Spontaneous
  Country: IT (occurrence: IT)
  Receive Date: 20231124
  Receipt Date: 20231124
  Transmission Date: 20240110
  Serious: Yes (Hospitalization)
  Sender: FDA-Public Use
  Company Number: IT-MINISAL02-940193

PATIENT
  Age: 70 Year
  Sex: Female
  Weight: 63 kg

DRUGS (12)
  1. ALPRAZOLAM [Suspect]
     Active Substance: ALPRAZOLAM
     Indication: Depression
     Dosage: ALPRAZOLAM (PA) 20CPR 1MG - DOSAGE SCHEME: 1/2 TABLET AT 8.00 AM, 1/2 TABLET AS NEEDED AT 2.00 PM AN
     Route: 048
     Dates: start: 2022
  2. PROMETHAZINE HYDROCHLORIDE [Suspect]
     Active Substance: PROMETHAZINE HYDROCHLORIDE
     Indication: Chemotherapy side effect prophylaxis
     Dosage: FARGANESSE* INJET 5F 50MG/2ML - ATC: R06AD02; LOT:12452; EXP: 01/24; DOSAGE SCHEME: ONE VIAL OF INJE
     Route: 040
     Dates: start: 20230727, end: 20230727
  3. PROMETHAZINE HYDROCHLORIDE [Suspect]
     Active Substance: PROMETHAZINE HYDROCHLORIDE
     Indication: Antiallergic therapy
  4. ZOLOFT [Concomitant]
     Active Substance: SERTRALINE HYDROCHLORIDE
     Indication: Depression
     Dosage: ZOLOFT 30CPR RIV 100MG - 1 TABLET AT 8:00 AM
     Route: 048
     Dates: start: 2022
  5. AMLODIPINE BESYLATE\OLMESARTAN MEDOXOMIL [Concomitant]
     Active Substance: AMLODIPINE BESYLATE\OLMESARTAN MEDOXOMIL
     Indication: Hypertension
     Dosage: BIVIS 28CPR RIV 20MG+5 MG - 1 TABLET AT 8.00 PM
     Route: 048
     Dates: start: 2022
  6. ROSETEM [Concomitant]
     Indication: Dyslipidaemia
     Dosage: ROSETEM* 28CPR 10MG - 1 TABLET AT 9.00 PM
     Route: 048
     Dates: start: 2022
  7. PACLITAXEL [Concomitant]
     Active Substance: PACLITAXEL
     Indication: Breast cancer
     Dosage: PACLITAXEL TEVA* 50ML 6MG/ML; ADMINISTERED DOSE: 120 MG I.V. IN 180 MINUTES; WEEKLY PACLITAXEL PROTO
     Route: 040
     Dates: start: 20230616
  8. DEXAMETHASONE [Concomitant]
     Active Substance: DEXAMETHASONE
     Indication: Steroid therapy
     Dosage: DEXAMETHASONE (PA) ADMINISTERED 8 MG - 1 TIME PER WEEK FOR CHEMOTHERAPY: WEEKLY PACLITAXEL PROTOCOL
     Route: 040
     Dates: start: 20230616
  9. DEXAMETHASONE [Concomitant]
     Active Substance: DEXAMETHASONE
     Indication: Chemotherapy side effect prophylaxis
  10. GRANISETRON [Concomitant]
     Active Substance: GRANISETRON
     Indication: Vomiting
     Dosage: GRANISETRON (PA) ADMINISTERED 3 MG ONCE A WEEK FOR CHEMOTHERAPY: WEEKLY PACLITAXEL PROTOCOL
     Route: 040
     Dates: start: 20230616
  11. GRANISETRON [Concomitant]
     Active Substance: GRANISETRON
     Indication: Chemotherapy side effect prophylaxis
  12. METOCLOPRAMIDE [Concomitant]
     Active Substance: METOCLOPRAMIDE
     Indication: Nausea
     Dosage: METOCLOPRAMIDE (PA) ADMINISTERED 10 MG ONCE A WEEK FOR CHEMOTHERAPY: WEEKLY PACLITAXEL PROTOCOL
     Route: 040
     Dates: start: 20230616

REACTIONS (6)
  - Loss of consciousness [Recovered/Resolved]
  - Tremor [Recovered/Resolved]
  - Muscle spasms [Recovered/Resolved]
  - Aphasia [Recovered/Resolved]
  - Ataxia [Recovered/Resolved]
  - Dry mouth [Recovered/Resolved]

NARRATIVE: CASE EVENT DATE: 20230728
